FAERS Safety Report 7784263-0 (Version None)
Quarter: 2011Q3

REPORT INFORMATION
  Report Type: 
  Country: None (occurrence: None)
  Receive Date: 20110928
  Receipt Date: 20110915
  Transmission Date: 20111222
  Serious: Yes (Other)
  Sender: FDA-Public Use
  Company Number: PHHY2011BR82455

PATIENT
  Sex: Male
  Weight: 130 kg

DRUGS (8)
  1. ATENOLOL [Concomitant]
     Dosage: 1 DF, BID, MORNING AND NIGHT
  2. EXFORGE [Suspect]
     Indication: HYPERTENSION
     Dosage: (VALS 160 MG, AMLO 05 MG) 1 DF, DAILY
     Route: 048
  3. FUROSEMIDE [Concomitant]
     Dosage: 1 DF, QD, MORNING
  4. EXFORGE [Suspect]
     Dosage: (VALS 160 MG, AMLO 05 MG) 2 DF, DAILY
     Route: 048
  5. METFORMIN HCL [Concomitant]
     Dosage: 1 DF, BID, MORNING AND AFTERNOON
  6. ASPIRIN [Concomitant]
     Dosage: 1 DF, BID, MORNING AND NIGHT
  7. SUSTRATE [Concomitant]
     Dosage: 1 DF, BID, MORNING AND NIGHT
  8. ZETSIM [Concomitant]
     Dosage: 1 DF, QD

REACTIONS (5)
  - TYPE 2 DIABETES MELLITUS [None]
  - HYPERTENSION [None]
  - MALAISE [None]
  - BLOOD GLUCOSE INCREASED [None]
  - INFARCTION [None]
